FAERS Safety Report 9920130 (Version 2)
Quarter: 2014Q1

REPORT INFORMATION
  Report Type: Report from Study
  Country: NL (occurrence: NL)
  Receive Date: 20140224
  Receipt Date: 20140325
  Transmission Date: 20141002
  Serious: Yes (Hospitalization)
  Sender: FDA-Public Use
  Company Number: PHHY2014NL021933

PATIENT
  Sex: Male

DRUGS (2)
  1. SANDOSTATINE LAR [Suspect]
     Indication: NEUROENDOCRINE TUMOUR
     Dosage: 20 MG PER 2 ML, ONCE EVERY 4 WEEKS
     Route: 030
  2. SANDOSTATINE LAR [Suspect]
     Dosage: 20 MG PER 2 ML, ONCE EVERY 4 WEEKS
     Route: 030
     Dates: start: 20140219

REACTIONS (2)
  - Sepsis [Unknown]
  - Abdominal pain upper [Recovering/Resolving]
